FAERS Safety Report 11857777 (Version 1)
Quarter: 2015Q4

REPORT INFORMATION
  Report Type: Spontaneous
  Country: US (occurrence: None)
  Receive Date: 20151221
  Receipt Date: 20151221
  Transmission Date: 20160305
  Serious: Yes (Hospitalization)
  Sender: FDA-Public Use
  Company Number: None

PATIENT
  Age: 40 Year
  Sex: Female

DRUGS (6)
  1. IFOSFAMIDE 1G MYLAN [Suspect]
     Active Substance: IFOSFAMIDE
     Indication: SARCOMA
     Dosage: 3.3G/3 DOSES QD INTRAVENOUS
     Route: 042
     Dates: start: 20151006, end: 20151008
  2. DOXORUBICIN [Concomitant]
     Active Substance: DOXORUBICIN
  3. MESNA. [Concomitant]
     Active Substance: MESNA
  4. IFOSFAMIDE 3G VIAL MYLAN [Suspect]
     Active Substance: IFOSFAMIDE
     Indication: SARCOMA
     Dosage: 3.3G/3 DOSES QD INTRAVENOUS
     Route: 042
     Dates: start: 20151006, end: 20151008
  5. ZOFRAN/DEX [Concomitant]
  6. EMEND [Concomitant]
     Active Substance: APREPITANT

REACTIONS (5)
  - Neurotoxicity [None]
  - Echolalia [None]
  - Mental status changes [None]
  - Agitation [None]
  - Confusional state [None]

NARRATIVE: CASE EVENT DATE: 20151008
